FAERS Safety Report 22080156 (Version 2)
Quarter: 2023Q1

REPORT INFORMATION
  Report Type: Spontaneous
  Country: US (occurrence: US)
  Receive Date: 20230309
  Receipt Date: 20230324
  Transmission Date: 20230417
  Serious: Yes (Hospitalization)
  Sender: FDA-Public Use
  Company Number: US-TEVA-2023-US-2862326

PATIENT
  Age: 18 Year
  Sex: Female

DRUGS (5)
  1. DAUNORUBICIN [Suspect]
     Active Substance: DAUNORUBICIN
     Indication: Acute myeloid leukaemia
     Dosage: INDUCTION CHEMOTHERAPY
     Route: 065
  2. ETOPOSIDE [Suspect]
     Active Substance: ETOPOSIDE
     Indication: Acute myeloid leukaemia
     Dosage: INDUCTION CHEMOTHERAPY
     Route: 065
  3. SORAFENIB [Suspect]
     Active Substance: SORAFENIB
     Indication: Acute myeloid leukaemia
     Dosage: INDUCTION CHEMOTHERAPY
     Route: 065
  4. HEPARIN [Suspect]
     Active Substance: HEPARIN SODIUM
     Indication: Anticoagulant therapy
     Dosage: HEPARIN DRIP
     Route: 065
  5. CYTARABINE [Suspect]
     Active Substance: CYTARABINE
     Indication: Acute myeloid leukaemia
     Dosage: HIGH-DOSE CYTARABINE; INDUCTION CHEMOTHERAPY
     Route: 065

REACTIONS (11)
  - Cardiogenic shock [Recovered/Resolved]
  - Cardiotoxicity [Recovered/Resolved]
  - Cardiopulmonary failure [Recovered/Resolved]
  - Acute kidney injury [Recovered/Resolved]
  - Thrombocytopenia [Recovered/Resolved]
  - Atrial fibrillation [Recovered/Resolved]
  - Cardiac failure congestive [Recovered/Resolved]
  - Hypervolaemia [Recovered/Resolved]
  - Cardiac dysfunction [Recovered/Resolved]
  - Peripheral artery thrombosis [Recovered/Resolved]
  - Epistaxis [Unknown]
